FAERS Safety Report 9019511 (Version 1)
Quarter: 2013Q1

REPORT INFORMATION
  Report Type: Spontaneous
  Country: GB (occurrence: GB)
  Receive Date: 20130118
  Receipt Date: 20130118
  Transmission Date: 20140127
  Serious: Yes (Other)
  Sender: FDA-Public Use
  Company Number: GB-TEVA-380302ISR

PATIENT
  Age: 41 Year
  Sex: Female
  Weight: 102 kg

DRUGS (4)
  1. LEVOTHYROXINE [Suspect]
     Dates: start: 20121102, end: 20121130
  2. INFLUENZA VIRUS [Concomitant]
     Dates: start: 20121025, end: 20121026
  3. KETOCONAZOLE [Concomitant]
     Dates: start: 20121107, end: 20121114
  4. TRANEXAMIC ACID [Concomitant]
     Dates: start: 20121107, end: 20121108

REACTIONS (2)
  - Swelling face [Recovered/Resolved]
  - Erythema [Recovered/Resolved]
